FAERS Safety Report 9946280 (Version 1)
Quarter: 2014Q1

REPORT INFORMATION
  Report Type: Spontaneous
  Country: US (occurrence: US)
  Receive Date: 20140303
  Receipt Date: 20140303
  Transmission Date: 20141002
  Serious: No
  Sender: FDA-Public Use
  Company Number: US-AMGEN-USASP2014005273

PATIENT
  Age: 56 Year
  Sex: Male
  Weight: 95.24 kg

DRUGS (11)
  1. ENBREL [Suspect]
     Indication: RHEUMATOID ARTHRITIS
     Dosage: 50 MG, QWK
     Route: 058
     Dates: start: 201301
  2. ENBREL [Suspect]
     Indication: PSORIATIC ARTHROPATHY
  3. ATORVASTATIN CALCIUM [Concomitant]
     Dosage: UNK
  4. LITHIUM CARBONATE [Concomitant]
     Dosage: UNK
  5. JUNEL FE [Concomitant]
     Dosage: UNK
  6. METHOTREXATE [Concomitant]
     Dosage: UNK
  7. PEG 3350 AND ELECTROLYTES [Concomitant]
     Dosage: UNK
  8. HYDROCODONE [Concomitant]
     Dosage: UNK
  9. AMLODIPINE [Concomitant]
     Dosage: UNK
  10. LISINOPRIL [Concomitant]
     Dosage: UNK
  11. FLUOXETIN [Concomitant]
     Dosage: UNK

REACTIONS (1)
  - Lymphadenopathy [Recovered/Resolved]
